FAERS Safety Report 19768164 (Version 1)
Quarter: 2021Q3

REPORT INFORMATION
  Report Type: Spontaneous
  Country: US (occurrence: US)
  Receive Date: 20210826
  Receipt Date: 20210826
  Transmission Date: 20211014
  Serious: No
  Sender: FDA-Public Use
  Company Number: None

PATIENT

DRUGS (2)
  1. ONDANSETRON [Suspect]
     Active Substance: ONDANSETRON
  2. OXYTOCIN. [Suspect]
     Active Substance: OXYTOCIN

REACTIONS (4)
  - Product label confusion [None]
  - Wrong product stored [None]
  - Product appearance confusion [None]
  - Intercepted product selection error [None]
